FAERS Safety Report 5086492-6 (Version None)
Quarter: 2006Q3

REPORT INFORMATION
  Report Type: 
  Country: None (occurrence: None)
  Receive Date: 20060823
  Receipt Date: 20060811
  Transmission Date: 20061208
  Serious: Yes (Other)
  Sender: FDA-Public Use
  Company Number: JP-BAYER-200610961BYL

PATIENT
  Age: 5 Month
  Sex: Male
  Weight: 72 kg

DRUGS (12)
  1. AVELOX [Suspect]
     Indication: TONSILLITIS
     Dosage: TOTAL DAILY DOSE: 400 MG  UNIT DOSE: 400 MG
     Route: 048
     Dates: start: 20060711, end: 20060715
  2. AVELOX [Suspect]
     Dosage: TOTAL DAILY DOSE: 400 MG  UNIT DOSE: 400 MG
     Route: 048
     Dates: start: 20060720, end: 20060721
  3. ROCEPHIN [Suspect]
     Indication: TONSILLITIS
     Dosage: TOTAL DAILY DOSE: 1 G  UNIT DOSE: 1 G
     Route: 041
     Dates: start: 20060702, end: 20060702
  4. ROCEPHIN [Suspect]
     Dosage: TOTAL DAILY DOSE: 1 G  UNIT DOSE: 1 G
     Route: 041
     Dates: start: 20060704, end: 20060704
  5. ROCEPHIN [Suspect]
     Dosage: TOTAL DAILY DOSE: 1 G  UNIT DOSE: 1 G
     Route: 041
     Dates: start: 20060711, end: 20060711
  6. ROCEPHIN [Suspect]
     Dosage: TOTAL DAILY DOSE: 1 G  UNIT DOSE: 1 G
     Route: 041
     Dates: start: 20060713, end: 20060713
  7. ROCEPHIN [Suspect]
     Dosage: TOTAL DAILY DOSE: 1 G  UNIT DOSE: 1 G
     Route: 041
     Dates: start: 20060720, end: 20060720
  8. LOXONIN [Concomitant]
     Indication: PYREXIA
     Dosage: TOTAL DAILY DOSE: 180 MG  UNIT DOSE: 60 MG
     Route: 048
     Dates: start: 20060702, end: 20060725
  9. DASEN [Concomitant]
     Indication: INFLAMMATION
     Dosage: TOTAL DAILY DOSE: 3 DF  UNIT DOSE: 1 DF
     Route: 048
     Dates: start: 20060702, end: 20060725
  10. PL [Concomitant]
     Indication: INFLAMMATION
     Dosage: TOTAL DAILY DOSE: 3 G  UNIT DOSE: 1 G
     Route: 048
     Dates: start: 20060702, end: 20060725
  11. ADALAT CR 20 [Concomitant]
     Indication: HYPERTENSION
     Dosage: TOTAL DAILY DOSE: 20 MG
     Route: 048
     Dates: start: 20060702
  12. MEIACT [Concomitant]
     Indication: TONSILLITIS
     Dosage: TOTAL DAILY DOSE: 300 MG
     Route: 048
     Dates: start: 20060704, end: 20060708

REACTIONS (8)
  - DISEASE PROGRESSION [None]
  - DRUG INEFFECTIVE [None]
  - LEUKOCYTOCLASTIC VASCULITIS [None]
  - PHARYNGOLARYNGEAL PAIN [None]
  - RASH [None]
  - TOXIC SKIN ERUPTION [None]
  - TYPE III IMMUNE COMPLEX MEDIATED REACTION [None]
  - TYPE IV HYPERSENSITIVITY REACTION [None]
